FAERS Safety Report 6454682-3 (Version None)
Quarter: 2009Q4

REPORT INFORMATION
  Report Type: 
  Country: None (occurrence: None)
  Receive Date: 20091118
  Receipt Date: 20091104
  Transmission Date: 20100525
  Serious: Yes (Other)
  Sender: FDA-Public Use
  Company Number: DE-1170589

PATIENT
  Age: 71 Year
  Sex: Female

DRUGS (1)
  1. FLUORESCITE [Suspect]
     Dosage: 2.5 ML 0.5ML/SEC, INTRAVENOUS BOLUS
     Route: 040
     Dates: start: 20090729

REACTIONS (6)
  - BLOOD PRESSURE DECREASED [None]
  - BLOOD PRESSURE INCREASED [None]
  - CIRCULATORY COLLAPSE [None]
  - DYSPNOEA [None]
  - NAUSEA [None]
  - TACHYCARDIA [None]
